FAERS Safety Report 7609280-2 (Version None)
Quarter: 2011Q3

REPORT INFORMATION
  Report Type: 
  Country: None (occurrence: None)
  Receive Date: 20110714
  Receipt Date: 20110708
  Transmission Date: 20111222
  Serious: Yes (Death, Other)
  Sender: FDA-Public Use
  Company Number: GB-PFIZER INC-2011022837

PATIENT

DRUGS (4)
  1. PARACETAMOL [Suspect]
     Indication: MATERNAL EXPOSURE DURING PREGNANCY
     Dosage: 1 G, UNK
     Route: 064
  2. BUTRANS [Suspect]
     Indication: MATERNAL EXPOSURE DURING PREGNANCY
     Dosage: 10 MCG, 4 DOSES EVERY HOUR
     Route: 064
     Dates: start: 20101215, end: 20101229
  3. ACETAMINOPHEN AND CODEINE PHOSPHATE [Suspect]
     Indication: MATERNAL EXPOSURE DURING PREGNANCY
     Dosage: UNK
     Route: 064
     Dates: start: 20101201
  4. MS CONTIN [Suspect]
     Dosage: 5 MG, BID
     Route: 064
     Dates: start: 20100922

REACTIONS (2)
  - MATERNAL EXPOSURE DURING PREGNANCY [None]
  - INTRA-UTERINE DEATH [None]
